FAERS Safety Report 5765226-3 (Version None)
Quarter: 2008Q2

REPORT INFORMATION
  Report Type: 
  Country: None (occurrence: None)
  Receive Date: 20080602
  Receipt Date: 20080201
  Transmission Date: 20081010
  Serious: No
  Sender: FDA-Public Use
  Company Number: PHEH2008US01524

PATIENT
  Sex: Male

DRUGS (1)
  1. TEKTURNA [Suspect]
     Dates: start: 20070601

REACTIONS (2)
  - ARTHRALGIA [None]
  - JOINT STIFFNESS [None]
